FAERS Safety Report 25107616 (Version 1)
Quarter: 2025Q1

REPORT INFORMATION
  Report Type: Spontaneous
  Country: CN (occurrence: CN)
  Receive Date: 20250322
  Receipt Date: 20250322
  Transmission Date: 20250409
  Serious: Yes (Hospitalization)
  Sender: ROCHE
  Company Number: CN-ROCHE-10000233907

PATIENT
  Age: 84 Year
  Sex: Female

DRUGS (4)
  1. BEVACIZUMAB [Suspect]
     Active Substance: BEVACIZUMAB
     Indication: Rectal cancer
     Route: 042
     Dates: start: 20241125, end: 20241125
  2. RALTITREXED [Suspect]
     Active Substance: RALTITREXED
     Indication: Rectal cancer
     Route: 042
     Dates: start: 20241125, end: 20241125
  3. TELPEGFILGRASTIM [Concomitant]
     Dates: start: 20241204
  4. HETROMBOPAG OLAMINE [Concomitant]
     Active Substance: HETROMBOPAG OLAMINE
     Route: 048
     Dates: start: 20241130, end: 20241213

REACTIONS (1)
  - Myelosuppression [Recovering/Resolving]

NARRATIVE: CASE EVENT DATE: 20241203
